FAERS Safety Report 7626504-6 (Version None)
Quarter: 2011Q3

REPORT INFORMATION
  Report Type: 
  Country: None (occurrence: None)
  Receive Date: 20110721
  Receipt Date: 20110505
  Transmission Date: 20111222
  Serious: No
  Sender: FDA-Public Use
  Company Number: US-NOVEN-11US002403

PATIENT
  Sex: Female

DRUGS (4)
  1. HYDROCODONE [Concomitant]
     Indication: PAIN
     Dosage: 1 TAB Q 6HR.
     Route: 048
  2. MORPHINE [Concomitant]
     Indication: PAIN
     Dosage: UNK
  3. WARFARIN SODIUM [Concomitant]
     Indication: ATRIAL FIBRILLATION
     Dosage: UNK
     Dates: start: 20080101
  4. FENTANYL [Suspect]
     Indication: PAIN
     Dosage: 25 UG/HR Q72H
     Route: 062
     Dates: start: 20110101

REACTIONS (2)
  - HAEMORRHAGIC DIATHESIS [None]
  - SKIN HAEMORRHAGE [None]
